FAERS Safety Report 23099366 (Version 2)
Quarter: 2023Q4

REPORT INFORMATION
  Report Type: Report from Study
  Country: US (occurrence: None)
  Receive Date: 20231024
  Receipt Date: 20231219
  Transmission Date: 20240109
  Serious: Yes (Other)
  Sender: FDA-Public Use
  Company Number: 2023A236010

PATIENT
  Sex: Female

DRUGS (1)
  1. FASENRA [Suspect]
     Active Substance: BENRALIZUMAB
     Route: 058

REACTIONS (6)
  - Lung neoplasm malignant [Unknown]
  - Polyp [Unknown]
  - Chronic obstructive pulmonary disease [Unknown]
  - Asthma [Unknown]
  - Memory impairment [Unknown]
  - COVID-19 [Unknown]
